FAERS Safety Report 5464317-4 (Version None)
Quarter: 2007Q3

REPORT INFORMATION
  Report Type: 
  Country: None (occurrence: None)
  Receive Date: 20070921
  Receipt Date: 20070913
  Transmission Date: 20080115
  Serious: Yes (Hospitalization, Other)
  Sender: FDA-Public Use
  Company Number: US-ELI_LILLY_AND_COMPANY-US200709002868

PATIENT
  Sex: Female

DRUGS (3)
  1. HUMULIN N [Suspect]
  2. HUMULIN R [Suspect]
  3. ACTOS [Concomitant]

REACTIONS (7)
  - CEREBRAL HAEMORRHAGE [None]
  - CEREBROVASCULAR ACCIDENT [None]
  - DIARRHOEA [None]
  - DYSPNOEA [None]
  - HOSPITALISATION [None]
  - HYPOAESTHESIA [None]
  - MYOCARDIAL INFARCTION [None]
